FAERS Safety Report 21791576 (Version 1)
Quarter: 2022Q4

REPORT INFORMATION
  Report Type: Spontaneous
  Country: US (occurrence: US)
  Receive Date: 20221228
  Receipt Date: 20221228
  Transmission Date: 20230113
  Serious: No
  Sender: FDA-Public Use
  Company Number: US-BRISTOL-MYERS SQUIBB COMPANY-2022-159895

PATIENT
  Age: 86 Year
  Sex: Male
  Weight: 66.22 kg

DRUGS (1)
  1. INREBIC [Suspect]
     Active Substance: FEDRATINIB HYDROCHLORIDE
     Indication: Myelodysplastic syndrome
     Dosage: ONCE DAILY
     Route: 048

REACTIONS (1)
  - Intentional product use issue [Unknown]
